FAERS Safety Report 9378584 (Version 1)
Quarter: 2013Q3

REPORT INFORMATION
  Report Type: Spontaneous
  Country: US (occurrence: US)
  Receive Date: 20130702
  Receipt Date: 20130702
  Transmission Date: 20140515
  Serious: No
  Sender: FDA-Public Use
  Company Number: US-009507513-1307USA000758

PATIENT
  Sex: Female

DRUGS (1)
  1. GANIRELIX ACETATE INJECTION [Suspect]
     Dosage: 250 MCG/0.5 ML 1 SYRINGE

REACTIONS (2)
  - Incorrect product storage [Unknown]
  - No adverse event [Unknown]
